FAERS Safety Report 17890203 (Version 1)
Quarter: 2020Q2

REPORT INFORMATION
  Report Type: Spontaneous
  Country: US (occurrence: US)
  Receive Date: 20200612
  Receipt Date: 20200612
  Transmission Date: 20200714
  Serious: Yes (Other)
  Sender: FDA-Public Use
  Company Number: None

PATIENT
  Age: 62 Year
  Sex: Female

DRUGS (13)
  1. HUMIRA [Suspect]
     Active Substance: ADALIMUMAB
     Indication: PSORIATIC ARTHROPATHY
     Dosage: ?          OTHER FREQUENCY:EVERY 2 WEEKS;?
     Route: 058
     Dates: start: 20200307
  2. HYDROCO/APAP [Concomitant]
     Active Substance: ACETAMINOPHEN\HYDROCODONE
  3. LEVOTHYROXIN [Concomitant]
     Active Substance: LEVOTHYROXINE
  4. CYCLOBENZAPR [Concomitant]
     Active Substance: CYCLOBENZAPRINE
  5. CEPHALEXIN. [Concomitant]
     Active Substance: CEPHALEXIN
  6. CIPRO [Concomitant]
     Active Substance: CIPROFLOXACIN HYDROCHLORIDE
  7. NARCAN [Concomitant]
     Active Substance: NALOXONE HYDROCHLORIDE
  8. OXYCODONE [Concomitant]
     Active Substance: OXYCODONE
  9. TRAMADOL. [Concomitant]
     Active Substance: TRAMADOL
  10. TEMAZEPAM. [Concomitant]
     Active Substance: TEMAZEPAM
  11. GABAPENTIN. [Concomitant]
     Active Substance: GABAPENTIN
  12. TRAZODONE [Concomitant]
     Active Substance: TRAZODONE HYDROCHLORIDE
  13. MUPIROCIN. [Concomitant]
     Active Substance: MUPIROCIN

REACTIONS (2)
  - Spinal operation [None]
  - Therapy interrupted [None]

NARRATIVE: CASE EVENT DATE: 20200411
